FAERS Safety Report 16683132 (Version 1)
Quarter: 2019Q3

REPORT INFORMATION
  Report Type: Spontaneous
  Country: US (occurrence: US)
  Receive Date: 20190807
  Receipt Date: 20190807
  Transmission Date: 20191004
  Serious: Yes (Hospitalization)
  Sender: FDA-Public Use
  Company Number: None

PATIENT
  Sex: Male

DRUGS (12)
  1. ATORVASTATIN [Concomitant]
     Active Substance: ATORVASTATIN
  2. PANTOPRAZOLE [Concomitant]
     Active Substance: PANTOPRAZOLE
  3. HUMIRA [Suspect]
     Active Substance: ADALIMUMAB
     Indication: CROHN^S DISEASE
     Dosage: ?          OTHER FREQUENCY:QOW;?
     Route: 058
     Dates: start: 20180416
  4. PROPRANOLOL [Concomitant]
     Active Substance: PROPRANOLOL HYDROCHLORIDE
  5. ALPRAZOLAM. [Concomitant]
     Active Substance: ALPRAZOLAM
  6. VASCEPA [Concomitant]
     Active Substance: ICOSAPENT ETHYL
  7. LISINOPRIL. [Concomitant]
     Active Substance: LISINOPRIL
  8. CEPHALEXIN. [Concomitant]
     Active Substance: CEPHALEXIN
  9. FOLIC ACID. [Concomitant]
     Active Substance: FOLIC ACID
  10. LEVOCETIRIZI [Concomitant]
  11. VANCOMYCIN [Concomitant]
     Active Substance: VANCOMYCIN
  12. VASCEPA [Concomitant]
     Active Substance: ICOSAPENT ETHYL

REACTIONS (3)
  - Skin disorder [None]
  - Clostridium difficile infection [None]
  - Crohn^s disease [None]
